FAERS Safety Report 6279686-5 (Version None)
Quarter: 2009Q3

REPORT INFORMATION
  Report Type: 
  Country: None (occurrence: None)
  Receive Date: 20090723
  Receipt Date: 20090716
  Transmission Date: 20100115
  Serious: Yes (Death, Life-Threatening, Hospitalization, Other)
  Sender: FDA-Public Use
  Company Number: ES-MERCK-0907ESP00023

PATIENT
  Age: 66 Year
  Sex: Female

DRUGS (5)
  1. FOSAMAX PLUS D [Suspect]
     Indication: OSTEOPOROSIS
     Route: 048
     Dates: start: 20090325, end: 20090417
  2. FOSAMAX PLUS D [Suspect]
     Route: 048
     Dates: start: 20090417
  3. OMEPRAZOLE [Concomitant]
     Route: 065
  4. TRIFLUSAL [Concomitant]
     Route: 065
  5. OLMESARTAN MEDOXOMIL [Concomitant]
     Indication: HYPERTENSION
     Route: 065

REACTIONS (23)
  - ADENOMA BENIGN [None]
  - AORTIC BRUIT [None]
  - AORTIC VALVE INCOMPETENCE [None]
  - ARRHYTHMIA [None]
  - ASPERGILLOSIS [None]
  - BLOOD GLUCOSE INCREASED [None]
  - BLOOD SODIUM DECREASED [None]
  - BRONCHIAL HAEMORRHAGE [None]
  - DIARRHOEA [None]
  - DRUG INEFFECTIVE [None]
  - ENCEPHALOPATHY [None]
  - HEPATIC CIRRHOSIS [None]
  - HEPATITIS ALCOHOLIC [None]
  - HEPATITIS FULMINANT [None]
  - HEPATORENAL SYNDROME [None]
  - HYPERGAMMAGLOBULINAEMIA [None]
  - INTERNATIONAL NORMALISED RATIO INCREASED [None]
  - MITRAL VALVE INCOMPETENCE [None]
  - PROTEIN TOTAL DECREASED [None]
  - PROTHROMBIN TIME PROLONGED [None]
  - RESPIRATORY FAILURE [None]
  - THROMBOCYTOPENIA [None]
  - VENTRICULAR HYPERTROPHY [None]
